FAERS Safety Report 9393271 (Version 2)
Quarter: 2013Q4

REPORT INFORMATION
  Report Type: Spontaneous
  Country: FR (occurrence: FR)
  Receive Date: 20130710
  Receipt Date: 20131004
  Transmission Date: 20140711
  Serious: Yes (Hospitalization)
  Sender: FDA-Public Use
  Company Number: FR-B.I. PHARMACEUTICALS,INC./RIDGEFIELD-2013-FF-01823FF

PATIENT
  Age: 97 Year
  Sex: Female
  Weight: 52 kg

DRUGS (7)
  1. PRADAXA [Suspect]
     Indication: ATRIAL FIBRILLATION
     Route: 048
  2. PRADAXA [Suspect]
     Route: 048
  3. PROFENID [Suspect]
     Indication: FALL
  4. CARDENSIEL [Concomitant]
     Dosage: 1.25
  5. TAHOR [Concomitant]
  6. HEMIGOXINE [Concomitant]
  7. NISISCO [Concomitant]
     Dosage: 160/12.5

REACTIONS (4)
  - Fall [Unknown]
  - Rib fracture [Unknown]
  - Melaena [Recovered/Resolved]
  - Haemothorax [Recovered/Resolved]
